FAERS Safety Report 9852892 (Version 1)
Quarter: 2014Q1

REPORT INFORMATION
  Report Type: Spontaneous
  Country: BR (occurrence: None)
  Receive Date: 20140127
  Receipt Date: 20140127
  Transmission Date: 20141002
  Serious: No
  Sender: FDA-Public Use
  Company Number: AUR-APL-2014-00641

PATIENT
  Age: 90 Year
  Sex: Female

DRUGS (3)
  1. CIPROFLOXACIN (CIPROFLOXACIN) [Suspect]
     Indication: PRODUCT USED FOR UNKNOWN INDICATION
  2. LIPITOR (ATORVASTATIN CALCIUM) [Suspect]
     Indication: PRODUCT USED FOR UNKNOWN INDICATION
     Route: 048
  3. AMIODARONE (AMIODARONE) [Suspect]
     Indication: PRODUCT USED FOR UNKNOWN INDICATION

REACTIONS (2)
  - Abdominal pain [None]
  - Myopathy [None]
